FAERS Safety Report 9201826 (Version 2)
Quarter: 2013Q2

REPORT INFORMATION
  Report Type: Spontaneous
  Country: FR (occurrence: FR)
  Receive Date: 20130401
  Receipt Date: 20130412
  Transmission Date: 20140414
  Serious: Yes (Life-Threatening, Hospitalization)
  Sender: FDA-Public Use
  Company Number: FR-ASTRAZENECA-2013SE20605

PATIENT
  Age: 40 Year
  Sex: Male

DRUGS (7)
  1. MOPRAL [Suspect]
     Dosage: UNKNOWN DOSE, AS REQUIRED
     Route: 048
  2. MOPRAL [Suspect]
     Dosage: UNKNOWN DOSE, AS REQUIRED
     Route: 048
     Dates: start: 20121017, end: 20121017
  3. VOLTARENE [Suspect]
     Route: 048
     Dates: start: 20121017, end: 20121017
  4. DOLIPRANE [Concomitant]
     Route: 048
  5. DOLIPRANE [Concomitant]
     Route: 048
  6. STILNOX [Concomitant]
     Route: 048
  7. DEROXAT [Concomitant]

REACTIONS (5)
  - Respiratory distress [Recovered/Resolved]
  - Dysphagia [Recovered/Resolved]
  - Hypotension [Recovered/Resolved]
  - Angioedema [Recovered/Resolved]
  - Drug hypersensitivity [Unknown]
